FAERS Safety Report 9144898 (Version 1)
Quarter: 2013Q1

REPORT INFORMATION
  Report Type: Spontaneous
  Country: US (occurrence: US)
  Receive Date: 20130307
  Receipt Date: 20130307
  Transmission Date: 20140127
  Serious: Yes (Other)
  Sender: FDA-Public Use
  Company Number: US-009507513-1303USA001372

PATIENT
  Age: 70 Year
  Sex: Male

DRUGS (4)
  1. JANUVIA [Suspect]
     Dosage: 100 MG, DAILY
     Route: 048
     Dates: start: 2011, end: 20130208
  2. JANUVIA [Suspect]
     Dosage: 100 MG, DAILY
     Route: 048
     Dates: start: 2013
  3. METFORMIN [Concomitant]
  4. INSULIN [Concomitant]

REACTIONS (1)
  - Pancreatitis [Recovered/Resolved]
